FAERS Safety Report 9797512 (Version 1)
Quarter: 2014Q1

REPORT INFORMATION
  Report Type: Report from Study
  Country: AU (occurrence: AU)
  Receive Date: 20140106
  Receipt Date: 20140106
  Transmission Date: 20141002
  Serious: Yes (Other)
  Sender: FDA-Public Use
  Company Number: PHHY2013AU152913

PATIENT
  Sex: Female

DRUGS (6)
  1. GLIVEC [Suspect]
     Indication: CHRONIC MYELOID LEUKAEMIA
     Dosage: UNK UKN, UNK
     Route: 048
  2. TASIGNA [Suspect]
     Indication: CHRONIC MYELOID LEUKAEMIA
     Dosage: UNK UKN, UNK
  3. DASATINIB [Suspect]
     Indication: CHRONIC MYELOID LEUKAEMIA
     Dosage: UNK UKN, UNK
  4. DASATINIB [Suspect]
     Dosage: UNK UKN, UNK
  5. DASATINIB [Suspect]
     Dosage: UNK UKN, UNK
  6. HYDROXYUREA [Concomitant]
     Dosage: UNK UKN, UNK

REACTIONS (6)
  - Pulmonary toxicity [Unknown]
  - Toxicity to various agents [Unknown]
  - Leukaemia recurrent [Unknown]
  - Chronic myeloid leukaemia [Unknown]
  - Malignant neoplasm progression [Unknown]
  - Drug resistance [Unknown]
